FAERS Safety Report 9936777 (Version 2)
Quarter: 2014Q1

REPORT INFORMATION
  Report Type: Spontaneous
  Country: US (occurrence: None)
  Receive Date: 20140107
  Receipt Date: 20140107
  Transmission Date: 20141002
  Serious: Yes (Other)
  Sender: FDA-Public Use
  Company Number: 2011AP000536

PATIENT
  Age: 50 Year
  Sex: Female
  Weight: 79 kg

DRUGS (8)
  1. LEVETIRACETAM TABLETS [Suspect]
     Indication: CONVULSION
     Dates: start: 200811, end: 200901
  2. PHENYTOIN [Concomitant]
  3. ESCITALOPRAM [Concomitant]
  4. SERETIDE [Concomitant]
  5. MULTIVITAMINS [Concomitant]
  6. RANITIDINE [Concomitant]
  7. DEXAMETHASONE [Concomitant]
  8. TEMOZOLOMIDE [Concomitant]

REACTIONS (1)
  - Thrombocytopenia [None]
